FAERS Safety Report 20759645 (Version 1)
Quarter: 2022Q2

REPORT INFORMATION
  Report Type: Spontaneous
  Country: US (occurrence: US)
  Receive Date: 20220427
  Receipt Date: 20220427
  Transmission Date: 20220720
  Serious: No
  Sender: FDA-Public Use
  Company Number: US-BioHaven Pharmaceuticals-2021BHV003062

PATIENT
  Age: 58 Year
  Sex: Male

DRUGS (1)
  1. NURTEC ODT [Suspect]
     Active Substance: RIMEGEPANT SULFATE
     Indication: Product used for unknown indication
     Dosage: THE PRESCRIPTION WAS DELIVERED TO THE PATIENT ON 23-NOV-2021, SO HE MUST HAVE STARTED THAT DAY OR TH
     Route: 048
     Dates: start: 202111

REACTIONS (1)
  - Urticaria [Unknown]
